FAERS Safety Report 24867876 (Version 1)
Quarter: 2025Q1

REPORT INFORMATION
  Report Type: Spontaneous
  Country: US (occurrence: US)
  Receive Date: 20250121
  Receipt Date: 20250121
  Transmission Date: 20250408
  Serious: No
  Sender: BOEHRINGER INGELHEIM
  Company Number: US-BoehringerIngelheim-2025-BI-003210

PATIENT
  Age: 82 Year
  Sex: Female

DRUGS (2)
  1. MICARDIS [Suspect]
     Active Substance: TELMISARTAN
     Indication: Blood pressure abnormal
  2. IRBESARTAN [Suspect]
     Active Substance: IRBESARTAN
     Indication: Blood pressure abnormal

REACTIONS (1)
  - Balance disorder [Unknown]
